FAERS Safety Report 17585972 (Version 1)
Quarter: 2020Q1

REPORT INFORMATION
  Report Type: Spontaneous
  Country: SE (occurrence: SE)
  Receive Date: 20200326
  Receipt Date: 20200326
  Transmission Date: 20200409
  Serious: Yes (Other)
  Sender: FDA-Public Use
  Company Number: SE-ASTRAZENECA-2020SE41109

PATIENT
  Sex: Female

DRUGS (1)
  1. FASLODEX [Suspect]
     Active Substance: FULVESTRANT
     Indication: BREAST CANCER
     Route: 030

REACTIONS (5)
  - Malignant neoplasm progression [Unknown]
  - Dementia Alzheimer^s type [Unknown]
  - Metastases to lung [Unknown]
  - Metastases to liver [Unknown]
  - Oedema peripheral [Unknown]
